FAERS Safety Report 4632434-4 (Version None)
Quarter: 2005Q2

REPORT INFORMATION
  Report Type: 
  Country: None (occurrence: None)
  Receive Date: 20050401
  Receipt Date: 20050106
  Transmission Date: 20051028
  Serious: Yes (Hospitalization)
  Sender: FDA-Public Use
  Company Number: 05P-163-0285902-00

PATIENT
  Sex: Female

DRUGS (2)
  1. DEPAKOTE [Suspect]
     Dosage: 1 GM, 1 IN 1 D, PER ORAL
     Route: 048
  2. RISPERIDONE [Concomitant]

REACTIONS (1)
  - PANCREATITIS [None]
